FAERS Safety Report 15126626 (Version 1)
Quarter: 2018Q3

REPORT INFORMATION
  Report Type: Spontaneous
  Country: IT (occurrence: IT)
  Receive Date: 20180710
  Receipt Date: 20180710
  Transmission Date: 20181010
  Serious: Yes (Hospitalization, Other)
  Sender: FDA-Public Use
  Company Number: IT-ALLERGAN-1834019US

PATIENT
  Age: 21 Year
  Sex: Female

DRUGS (1)
  1. GENTAMICIN UNK [Suspect]
     Active Substance: GENTAMICIN
     Indication: INFECTIVE KERATITIS
     Dosage: UNK, SINGLE
     Route: 057

REACTIONS (12)
  - Retinal toxicity [Unknown]
  - Overdose [Unknown]
  - Retinal tear [Unknown]
  - Lens dislocation [Unknown]
  - Incorrect route of drug administration [Unknown]
  - Iridocyclitis [Unknown]
  - Open globe injury [Unknown]
  - Procedural complication [Unknown]
  - Retinal ischaemia [Unknown]
  - Retinal vasculitis [Unknown]
  - Sudden visual loss [Recovering/Resolving]
  - Eye pain [Unknown]
